FAERS Safety Report 8917383 (Version 1)
Quarter: 2012Q4

REPORT INFORMATION
  Report Type: 
  Country: FR (occurrence: FR)
  Receive Date: 20121119
  Receipt Date: 20121119
  Transmission Date: 20130627
  Serious: Yes (Hospitalization)
  Sender: FDA-Public Use
  Company Number: FR-UCBSA-070805

PATIENT
  Age: 83 Year
  Sex: Male

DRUGS (9)
  1. NEUPRO [Suspect]
     Indication: PARKINSON^S DISEASE
     Dosage: DAILY DOSE: 4MG
     Dates: end: 20120910
  2. QVAR [Concomitant]
  3. AMIODARONE [Concomitant]
  4. KALEORID [Concomitant]
     Dosage: 1000 MG
  5. MODOPAR [Concomitant]
     Dosage: 125 MG (100 MG/25 MG)
  6. MODOPAR [Concomitant]
     Dosage: 100MG/25MG TABLETS FOR ORAL SUSPENSION
  7. RAMIPRIL [Concomitant]
  8. PAROXETINE [Concomitant]
  9. LASILIX SPECIAL [Concomitant]
     Dosage: 500 MG

REACTIONS (4)
  - Dermatitis contact [Recovered/Resolved]
  - Rash pruritic [Recovered/Resolved]
  - Rash maculo-papular [Recovered/Resolved]
  - Skin ulcer [Unknown]
